FAERS Safety Report 6637836-2 (Version None)
Quarter: 2010Q1

REPORT INFORMATION
  Report Type: 
  Country: None (occurrence: None)
  Receive Date: 20100317
  Receipt Date: 20100305
  Transmission Date: 20100710
  Serious: Yes (Other)
  Sender: FDA-Public Use
  Company Number: US-BAYER-201012886BCC

PATIENT
  Age: 78 Year
  Sex: Female
  Weight: 54 kg

DRUGS (5)
  1. ASPIRIN [Suspect]
     Indication: CEREBROVASCULAR ACCIDENT PROPHYLAXIS
     Dosage: TOTAL DAILY DOSE: 81 MG  UNIT DOSE: 81 MG
     Route: 048
  2. GENUINE BAYER 325MG ASPIRIN [Suspect]
     Indication: CEREBROVASCULAR ACCIDENT PROPHYLAXIS
     Dosage: TOTAL DAILY DOSE: 325 MG  UNIT DOSE: 325 MG
     Route: 048
  3. QVAR 40 [Concomitant]
     Dosage: 2 PUFFS IN AM
  4. PROAIR HFA [Concomitant]
     Dosage: 2 PUFFS TWICE A DAY
     Route: 065
  5. SPIRIVA [Concomitant]
     Dosage: TOTAL DAILY DOSE: 18 ?G  UNIT DOSE: 18 ?G
     Route: 048

REACTIONS (9)
  - CEREBROVASCULAR ACCIDENT [None]
  - CONTUSION [None]
  - FEELING ABNORMAL [None]
  - FEELING COLD [None]
  - FEELING HOT [None]
  - HYPOAESTHESIA [None]
  - INCREASED TENDENCY TO BRUISE [None]
  - MOBILITY DECREASED [None]
  - SKIN ATROPHY [None]
